FAERS Safety Report 7445513-3 (Version None)
Quarter: 2011Q2

REPORT INFORMATION
  Report Type: 
  Country: None (occurrence: None)
  Receive Date: 20110420
  Receipt Date: 20110311
  Transmission Date: 20111010
  Serious: No
  Sender: FDA-Public Use
  Company Number: 2011-00102

PATIENT
  Age: 80 Year
  Sex: Male

DRUGS (1)
  1. ZICAM COLD REMIEDY RAPIDMLTS WITH VITAMIN C [Suspect]
     Dosage: AS DIRECTED X 7 DAYS
     Dates: start: 20110305, end: 20110311

REACTIONS (1)
  - AGEUSIA [None]
